FAERS Safety Report 20738423 (Version 1)
Quarter: 2022Q2

REPORT INFORMATION
  Report Type: Report from Study
  Country: ES (occurrence: ES)
  Receive Date: 20220422
  Receipt Date: 20220422
  Transmission Date: 20220721
  Serious: Yes (Hospitalization)
  Sender: FDA-Public Use
  Company Number: None

PATIENT
  Age: 65 Year
  Sex: Female

DRUGS (11)
  1. TELMISARTAN [Interacting]
     Active Substance: TELMISARTAN
     Indication: Hypertension
     Dosage: 1 DOSAGE FORMS DAILY; TELMISARTAN (1099A)
     Route: 048
     Dates: start: 20170626, end: 20211214
  2. AMLODIPINE [Interacting]
     Active Substance: AMLODIPINE BESYLATE
     Indication: Hypertension
     Dosage: 1 DOSAGE FORMS DAILY; AMLODIPINE 5 MG 28 TABLETS
     Route: 048
     Dates: start: 201804
  3. PANTOPRAZOLE [Concomitant]
     Active Substance: PANTOPRAZOLE
     Dosage: 1 DOSAGE FORMS DAILY; PANTOPRAZOLE 40 MG 56 TABLETS
     Route: 048
     Dates: start: 20191030
  4. AMITRIPTYLINE [Concomitant]
     Active Substance: AMITRIPTYLINE
     Dosage: 2 DOSAGE FORMS DAILY; 1 TABLET EVERY 12 HOURS,AMITRIPTYLINE 25 MG 24 TABLETS
     Route: 048
     Dates: start: 201504
  5. ALPRAZOLAM [Concomitant]
     Active Substance: ALPRAZOLAM
     Indication: Anxiety
     Dosage: 1 DOSAGE FORMS DAILY; ALPRAZOLAM (99A)
     Route: 048
     Dates: start: 201504
  6. INSULIN GLARGINE [Concomitant]
     Active Substance: INSULIN GLARGINE
     Indication: Diabetes mellitus
     Dosage: 10 U/ 24 HOURS,ABASAGLAR 100 UNITS/ML KWIKPEN INJECTABLE SOLUTION IN PRE-FILLED PEN 5 PRE-FILLED PEN
     Route: 058
     Dates: start: 20211122
  7. BISOPROLOL [Concomitant]
     Active Substance: BISOPROLOL
     Dosage: 1 DOSAGE FORMS DAILY; BISOPROLOL (2328A)
     Route: 048
     Dates: start: 201507
  8. SIMVASTATIN [Concomitant]
     Active Substance: SIMVASTATIN
     Dosage: 1 DOSAGE FORMS DAILY; SIMVASTATIN 20 MG 28 TABLETS
     Route: 048
     Dates: start: 201707
  9. FLUOXETINE [Concomitant]
     Active Substance: FLUOXETINE HYDROCHLORIDE
     Dosage: 1 DOSAGE FORMS DAILY; FLUOXETINE 20 MG 28 TABLETS
     Route: 048
     Dates: start: 201503
  10. DAPAGLIFLOZIN [Concomitant]
     Active Substance: DAPAGLIFLOZIN
     Indication: Diabetes mellitus
     Dosage: 1 DOSAGE FORMS DAILY; DAPAGLIFLOZINA (8615A)
     Route: 048
     Dates: start: 20211122
  11. LINAGLIPTIN [Concomitant]
     Active Substance: LINAGLIPTIN
     Indication: Diabetes mellitus
     Dosage: 1 DOSAGE FORMS DAILY; LINAGLIPTIN 5 MG 30 TABLETS
     Route: 048
     Dates: start: 201804

REACTIONS (3)
  - Hypotension [Recovered/Resolved]
  - Chronic kidney disease [Recovered/Resolved]
  - Drug interaction [Unknown]

NARRATIVE: CASE EVENT DATE: 20211208
